FAERS Safety Report 24606080 (Version 1)
Quarter: 2024Q4

REPORT INFORMATION
  Report Type: Spontaneous
  Country: US (occurrence: US)
  Receive Date: 20241112
  Receipt Date: 20241112
  Transmission Date: 20250114
  Serious: No
  Sender: AMGEN
  Company Number: US-AMGEN-USASP2024221132

PATIENT
  Age: 29 Year
  Sex: Female

DRUGS (2)
  1. PREDNISONE [Suspect]
     Active Substance: PREDNISONE
     Indication: Chronic granulomatous disease
     Dosage: UNK
     Route: 065
  2. GABAPENTIN [Concomitant]
     Active Substance: GABAPENTIN
     Indication: Chronic granulomatous disease
     Dosage: UNK

REACTIONS (3)
  - Tooth abscess [Recovered/Resolved]
  - Trigeminal neuralgia [Unknown]
  - Off label use [Unknown]
